FAERS Safety Report 4324964-X (Version None)
Quarter: 2004Q1

REPORT INFORMATION
  Report Type: 
  Country: None (occurrence: None)
  Receive Date: 20040324
  Receipt Date: 20040312
  Transmission Date: 20041129
  Serious: Yes (Hospitalization)
  Sender: FDA-Public Use
  Company Number: 04P-062-0252179-00

PATIENT
  Age: 71 Year
  Sex: Female
  Weight: 103 kg

DRUGS (3)
  1. HUMIRA [Suspect]
     Indication: RHEUMATOID ARTHRITIS
     Dosage: 40 MG, 1 IN 2 WK, SUBCUTANEOUS
     Route: 058
     Dates: start: 20031101
  2. GLUCOCORTICOIDS [Concomitant]
  3. METHOTREXATE [Concomitant]

REACTIONS (4)
  - ANKLE FRACTURE [None]
  - FOOT FRACTURE [None]
  - INJURY [None]
  - ROAD TRAFFIC ACCIDENT [None]
